FAERS Safety Report 15399940 (Version 4)
Quarter: 2019Q2

REPORT INFORMATION
  Report Type: Report from Study
  Country: None (occurrence: IE)
  Receive Date: 20180919
  Receipt Date: 20190523
  Transmission Date: 20190711
  Serious: Yes (Hospitalization, Other)
  Sender: FDA-Public Use
  Company Number: IE-ABBVIE-18K-229-2486649-00

PATIENT
  Age: 54 Year
  Sex: Male
  Weight: 54.75 kg

DRUGS (3)
  1. HUMIRA [Suspect]
     Active Substance: ADALIMUMAB
     Dosage: DAY 15
     Route: 058
     Dates: start: 2016, end: 2016
  2. HUMIRA [Suspect]
     Active Substance: ADALIMUMAB
     Indication: CROHN^S DISEASE
     Dosage: DAY 1
     Route: 058
     Dates: start: 20160516, end: 20160516
  3. HUMIRA [Suspect]
     Active Substance: ADALIMUMAB
     Route: 058
     Dates: start: 2016, end: 201801

REACTIONS (2)
  - Disseminated tuberculosis [Recovering/Resolving]
  - Immune reconstitution inflammatory syndrome [Recovering/Resolving]

NARRATIVE: CASE EVENT DATE: 201801
